FAERS Safety Report 7240177-6 (Version None)
Quarter: 2011Q1

REPORT INFORMATION
  Report Type: 
  Country: None (occurrence: None)
  Receive Date: 20110124
  Receipt Date: 20100623
  Transmission Date: 20110831
  Serious: Yes (Death)
  Sender: FDA-Public Use
  Company Number: KR-PFIZER INC-2011013593

PATIENT
  Age: 52 Year
  Sex: Female
  Weight: 52.7 kg

DRUGS (7)
  1. VORICONAZOLE [Suspect]
     Indication: FUNGAL INFECTION
     Dosage: 300 MG, 2X/DAY
     Route: 042
     Dates: start: 20060930, end: 20060930
  2. VANCOMYCIN [Concomitant]
     Indication: INFECTION PROPHYLAXIS
     Dosage: 1 G, 2X/DAY
     Route: 042
     Dates: start: 20060930, end: 20061009
  3. CIRRUS [Concomitant]
     Indication: INFLAMMATION
     Dosage: 2X/DAY
     Route: 048
     Dates: start: 20060923, end: 20061003
  4. IMIPENEM AND CILASTATIN SODIUM [Concomitant]
     Indication: INFECTION PROPHYLAXIS
     Dosage: 2000 MG, 2X/DAY
     Route: 042
     Dates: start: 20060928, end: 20061011
  5. LENOGRASTIM [Concomitant]
     Indication: PROPHYLAXIS
     Dosage: 250 UG, 1X/DAY
     Route: 041
     Dates: start: 20060919
  6. ACYCLOVIR [Concomitant]
     Indication: HERPES ZOSTER
     Dosage: 250 MG, 3X/DAY
     Route: 042
     Dates: start: 20060929, end: 20061009
  7. VORICONAZOLE [Suspect]
     Dosage: 200 MG, 2X/DAY
     Route: 042
     Dates: start: 20061001, end: 20061011

REACTIONS (2)
  - HAEMATOCHEZIA [None]
  - DEATH [None]
